FAERS Safety Report 5520816-8 (Version None)
Quarter: 2007Q4

REPORT INFORMATION
  Report Type: 
  Country: None (occurrence: None)
  Receive Date: 20071119
  Receipt Date: 20071107
  Transmission Date: 20080405
  Serious: Yes (Hospitalization)
  Sender: FDA-Public Use
  Company Number: GB-AMGEN-UK248683

PATIENT
  Sex: Female
  Weight: 78.9 kg

DRUGS (2)
  1. PANITUMUMAB [Suspect]
     Indication: COLORECTAL CANCER
     Route: 042
     Dates: start: 20070704
  2. IRINOTECAN HCL [Concomitant]
     Route: 042
     Dates: start: 20070704

REACTIONS (2)
  - CELLULITIS [None]
  - LYMPHANGITIS [None]
